FAERS Safety Report 9423265 (Version 2)
Quarter: 2013Q3

REPORT INFORMATION
  Report Type: Not Available
  Country: US (occurrence: US)
  Receive Date: 20130726
  Receipt Date: 20130805
  Transmission Date: 20140515
  Serious: Yes (Other)
  Sender: FDA-Public Use
  Company Number: US-LUNDBECK-DKLU1092560

PATIENT
  Age: 1 Year
  Sex: Female

DRUGS (5)
  1. SABRIL (FOR ORAL SOLUTION) [Suspect]
     Indication: INFANTILE SPASMS
     Dates: start: 20130618
  2. SABRIL (FOR ORAL SOLUTION) [Suspect]
  3. SABRIL (FOR ORAL SOLUTION) [Suspect]
  4. SABRIL (FOR ORAL SOLUTION) [Suspect]
  5. ZONISAMIDE [Concomitant]
     Indication: INFANTILE SPASMS

REACTIONS (1)
  - Partial seizures [Recovered/Resolved]
